FAERS Safety Report 7935909-5 (Version None)
Quarter: 2011Q4

REPORT INFORMATION
  Report Type: 
  Country: None (occurrence: None)
  Receive Date: 20111123
  Receipt Date: 20111116
  Transmission Date: 20120403
  Serious: Yes (Life-Threatening, Other)
  Sender: FDA-Public Use
  Company Number: US-CELGENEUS-163-21880-11040834

PATIENT
  Sex: Male

DRUGS (11)
  1. METFORMIN HCL [Concomitant]
     Dosage: 500 MILLIGRAM
     Route: 048
  2. ROPINIROLE [Concomitant]
     Dosage: .5 MILLIGRAM
     Route: 048
  3. CLARITHROMYCIN [Concomitant]
     Dosage: 500 MILLIGRAM
     Route: 048
  4. NIACIN/LOVASTATIN [Concomitant]
     Dosage: 1,000-20MG
     Route: 048
  5. CALCIUM CARBONATE WITH VITAMIN D [Concomitant]
     Dosage: 500MG/125 UNIT
     Route: 048
  6. POTASSIUM CHLORIDE [Concomitant]
     Dosage: 10 MILLIEQUIVALENTS
     Route: 048
  7. SYNTHROID [Concomitant]
     Dosage: 100 MICROGRAM
     Route: 048
  8. PAMIDRONATE DISODIUM [Concomitant]
     Dosage: 90 MILLIGRAM
     Route: 041
  9. REVLIMID [Suspect]
     Dosage: 10 MILLIGRAM
     Route: 048
     Dates: start: 20100501, end: 20110406
  10. REVLIMID [Suspect]
     Indication: MULTIPLE MYELOMA
     Dosage: 25 MILLIGRAM
     Route: 048
     Dates: start: 20081101
  11. SYNTHROID [Concomitant]
     Dosage: 112 MICROGRAM
     Route: 048

REACTIONS (5)
  - PRURITUS [None]
  - FLUSHING [None]
  - WHITE BLOOD CELL COUNT DECREASED [None]
  - ANAEMIA [None]
  - THROMBOCYTOPENIA [None]
